FAERS Safety Report 10050150 (Version 1)
Quarter: 2014Q1

REPORT INFORMATION
  Report Type: Spontaneous
  Country: US (occurrence: None)
  Receive Date: 20140331
  Receipt Date: 20140331
  Transmission Date: 20141002
  Serious: Yes (Other)
  Sender: FDA-Public Use
  Company Number: None

PATIENT
  Age: 49 Year
  Sex: Female
  Weight: 74.84 kg

DRUGS (1)
  1. LAMOTRIGINE [Suspect]
     Indication: MIGRAINE
     Dosage: 2  ONCE DAILY TAKEN BY MOUTH
     Route: 048
     Dates: start: 20140314, end: 20140327

REACTIONS (3)
  - Rash [None]
  - Swelling face [None]
  - Rash [None]
